FAERS Safety Report 6196658-X (Version None)
Quarter: 2009Q2

REPORT INFORMATION
  Report Type: 
  Country: None (occurrence: None)
  Receive Date: 20090520
  Receipt Date: 20090513
  Transmission Date: 20091009
  Serious: Yes (Other)
  Sender: FDA-Public Use
  Company Number: B0380903A

PATIENT
  Sex: Male

DRUGS (10)
  1. EPIVIR [Suspect]
     Indication: HIV INFECTION
     Dosage: 150MG TWICE PER DAY
     Route: 048
     Dates: start: 19970731, end: 20050330
  2. RETROVIR [Suspect]
     Indication: HIV INFECTION
     Route: 048
     Dates: start: 19970213, end: 20041108
  3. ZIAGEN [Suspect]
     Indication: HIV INFECTION
     Dosage: 300MG TWICE PER DAY
     Route: 048
     Dates: start: 20041109, end: 20050330
  4. CRIXIVAN [Suspect]
     Indication: HIV INFECTION
     Dosage: 800MG THREE TIMES PER DAY
     Route: 048
     Dates: start: 19970731, end: 20041108
  5. NORVIR [Suspect]
     Indication: HIV INFECTION
     Dosage: 100MG PER DAY
     Route: 048
     Dates: start: 20041109
  6. REYATAZ [Suspect]
     Indication: HIV INFECTION
     Route: 048
     Dates: start: 20041109
  7. EPZICOM [Suspect]
     Indication: HIV INFECTION
     Route: 048
     Dates: start: 20050331
  8. ANTIHEMOPHILIC FACTOR (HUMAN) [Concomitant]
     Indication: FACTOR VIII DEFICIENCY
     Route: 058
  9. MILTAX [Concomitant]
     Indication: FACTOR VII DEFICIENCY
     Route: 062
     Dates: start: 20060829
  10. MYSLEE [Concomitant]
     Indication: INSOMNIA
     Dosage: 5MG PER DAY
     Route: 048
     Dates: start: 20070401, end: 20070430

REACTIONS (2)
  - BLOOD BILIRUBIN INCREASED [None]
  - DIARRHOEA [None]
